FAERS Safety Report 6536826-8 (Version None)
Quarter: 2010Q1

REPORT INFORMATION
  Report Type: 
  Country: None (occurrence: None)
  Receive Date: 20100107
  Receipt Date: 20091230
  Transmission Date: 20100710
  Serious: Yes (Hospitalization)
  Sender: FDA-Public Use
  Company Number: 2009029708

PATIENT
  Age: 58 Year
  Sex: Female
  Weight: 90.7194 kg

DRUGS (24)
  1. PROVIGIL [Suspect]
     Indication: SOMNOLENCE
     Dosage: (200 MG), ORAL
     Route: 048
     Dates: start: 20080101, end: 20091214
  2. OXYCONTIN [Concomitant]
  3. OXYCODONE HYDROCHLORIDE [Concomitant]
  4. SKELAXIN (CHLORZOXAZONE, PARACETAMOL) [Concomitant]
  5. SPIRONOLACTONE [Concomitant]
  6. BUMETANIDE [Concomitant]
  7. MIRAPEX [Concomitant]
  8. PRILOSEC [Concomitant]
  9. ALBUTEROL SULFATE (SALBUTAMOL) [Concomitant]
  10. SYMBICORT [Concomitant]
  11. SAVLLA (MILNACIPRAN) [Concomitant]
  12. SPIRIVA [Concomitant]
  13. ZYRTEC [Concomitant]
  14. SINGULAIR [Concomitant]
  15. PREMARIN [Concomitant]
  16. PROVERA [Concomitant]
  17. TOVIAZ (FESOTERODINE) [Concomitant]
  18. MUCINEX (GAUIFENSIN) [Concomitant]
  19. VOLTAREN [Concomitant]
  20. HYDROCORTONE [Concomitant]
  21. BACTROBAN [Concomitant]
  22. PATANOL [Concomitant]
  23. SYSTANE (PROPYLENE GLYCOL, MACROGOL) [Concomitant]
  24. FLOVENT [Concomitant]

REACTIONS (8)
  - BLISTER [None]
  - CELLULITIS [None]
  - CONDITION AGGRAVATED [None]
  - DRUG INEFFECTIVE [None]
  - FALL [None]
  - PRURITUS [None]
  - SCRATCH [None]
  - SOMNOLENCE [None]
